FAERS Safety Report 8531573 (Version 5)
Quarter: 2012Q4

REPORT INFORMATION
  Report Type: 
  Country: JP (occurrence: JP)
  Receive Date: 20120426
  Receipt Date: 20121026
  Transmission Date: 20130627
  Serious: Yes (Disabling)
  Sender: FDA-Public Use
  Company Number: JP-ASTRAZENECA-2012SE20681

PATIENT
  Age: 49 Year
  Sex: Female
  Weight: 55 kg

DRUGS (11)
  1. ANAPEINE [Suspect]
     Indication: EPIDURAL ANAESTHESIA
     Dosage: Dose decreased from 5 mL/h to 3 mL/h
     Route: 008
     Dates: start: 20120316, end: 20120317
  2. XYLOCAINE [Concomitant]
     Indication: EPIDURAL TEST DOSE
     Route: 040
     Dates: start: 20120316, end: 20120316
  3. XYLOCAINE [Concomitant]
     Indication: EPIDURAL TEST DOSE
     Route: 040
     Dates: start: 20120316, end: 20120316
  4. PROPOFOL [Concomitant]
     Indication: INDUCTION OF ANAESTHESIA
     Route: 042
     Dates: start: 20120316, end: 20120316
  5. REMIFENTANIL HYDROCHLORIDE [Concomitant]
     Indication: INDUCTION AND MAINTENANCE OF ANAESTHESIA
     Route: 042
     Dates: start: 20120316, end: 20120316
  6. SEVOFLURANE [Concomitant]
     Indication: MAINTENANCE OF ANAESTHESIA
     Route: 055
     Dates: start: 20120316, end: 20120316
  7. ESLAX [Concomitant]
     Indication: INDUCTION OF ANAESTHESIA
     Route: 042
     Dates: start: 20120316, end: 20120316
  8. CEFMETAZOLE SODIUM [Concomitant]
     Indication: INFECTION PROPHYLAXIS
     Route: 042
     Dates: start: 20120316, end: 20120316
  9. ROPION [Concomitant]
     Indication: POSTOPERATIVE ANALGESIA
     Route: 042
     Dates: start: 20120316, end: 20120316
  10. BRIDION [Concomitant]
     Route: 042
     Dates: start: 20120316, end: 20120316
  11. DROLEPTAN [Concomitant]
     Indication: ANTIEMETIC SUPPORTIVE CARE
     Route: 042
     Dates: start: 20120316, end: 20120316

REACTIONS (1)
  - Diplegia [Recovering/Resolving]
